FAERS Safety Report 5059989-2 (Version None)
Quarter: 2006Q3

REPORT INFORMATION
  Report Type: 
  Country: None (occurrence: None)
  Receive Date: 20060719
  Receipt Date: 20060706
  Transmission Date: 20061208
  Serious: Yes (Hospitalization)
  Sender: FDA-Public Use
  Company Number: 2006JP001880

PATIENT
  Age: 69 Year
  Sex: Female
  Weight: 60 kg

DRUGS (7)
  1. VESICARE [Suspect]
     Dosage: 5 MG, UID/QD, ORAL
     Route: 048
     Dates: start: 20060613, end: 20060614
  2. AMLODIPINE BESYLATE [Concomitant]
  3. DASEN                 (SERRAPEPTASE) [Concomitant]
  4. CHOREITOU             (HERBAL EXTRACT NOS) GRANULE [Concomitant]
  5. TINELAC         (SENNOSIDE A+B) [Concomitant]
  6. CLARITHROMYCIN [Concomitant]
  7. DEPAS                 (ETIZOLAM) [Concomitant]

REACTIONS (2)
  - CONSTIPATION [None]
  - HYPERTENSION [None]
